FAERS Safety Report 9680738 (Version 1)
Quarter: 2013Q4

REPORT INFORMATION
  Report Type: Spontaneous
  Country: US (occurrence: None)
  Receive Date: 20131108
  Receipt Date: 20131108
  Transmission Date: 20140711
  Serious: Yes (Hospitalization)
  Sender: FDA-Public Use
  Company Number: None

PATIENT
  Age: 76 Year
  Sex: Male
  Weight: 116.58 kg

DRUGS (1)
  1. PRIVIGEN [Suspect]
     Indication: CHRONIC INFLAMMATORY DEMYELINATING POLYRADICULONEUROPATHY
     Route: 042
     Dates: start: 20131106, end: 20131106

REACTIONS (12)
  - Dyspnoea [None]
  - Feeling abnormal [None]
  - Flushing [None]
  - Chest discomfort [None]
  - Blood pressure increased [None]
  - Hypoaesthesia [None]
  - Paraesthesia [None]
  - Dysarthria [None]
  - Peripheral coldness [None]
  - Grip strength decreased [None]
  - Hallucination, visual [None]
  - Hallucination, auditory [None]
